FAERS Safety Report 4393334-0 (Version None)
Quarter: 2004Q3

REPORT INFORMATION
  Report Type: 
  Country: None (occurrence: None)
  Receive Date: 20040708
  Receipt Date: 20040615
  Transmission Date: 20050211
  Serious: Yes (Hospitalization)
  Sender: FDA-Public Use
  Company Number: US-AMGEN-US080199

PATIENT
  Sex: Female
  Weight: 59 kg

DRUGS (8)
  1. NEULASTA [Suspect]
     Indication: CHEMOTHERAPY
     Route: 058
     Dates: start: 20040416
  2. CYCLOPHOSPHAMIDE [Concomitant]
     Dates: start: 20040525
  3. DOXORUBICIN HCL [Concomitant]
     Dates: start: 20040525
  4. VINCRISTINE [Concomitant]
     Dates: start: 20040525
  5. PREDNISONE [Concomitant]
     Dates: start: 20040525
  6. LORAZEPAM [Concomitant]
     Route: 042
     Dates: start: 20040525
  7. DIPHENHYDRAMINE HCL [Concomitant]
     Dates: start: 20040525
  8. ARANESP [Concomitant]
     Route: 058
     Dates: start: 20040505

REACTIONS (3)
  - CAPILLARY LEAK SYNDROME [None]
  - RESPIRATORY DISTRESS [None]
  - WHITE BLOOD CELL COUNT INCREASED [None]
